FAERS Safety Report 16462902 (Version 1)
Quarter: 2019Q2

REPORT INFORMATION
  Report Type: Spontaneous
  Country: US (occurrence: US)
  Receive Date: 20190621
  Receipt Date: 20190621
  Transmission Date: 20190711
  Serious: No
  Sender: FDA-Public Use
  Company Number: US-ASTRAZENECA-2019SE78661

PATIENT
  Age: 75 Year
  Sex: Male

DRUGS (1)
  1. FASENRA [Suspect]
     Active Substance: BENRALIZUMAB
     Indication: ASTHMA
     Dosage: 30 MG EVERY FOUR WEEKS FOR THE FIRST 3 DOSES AND THEN EVERY 8 WEEKS THERE AFTER
     Route: 058
     Dates: start: 20190515

REACTIONS (2)
  - Headache [Unknown]
  - Insomnia [Unknown]
